FAERS Safety Report 8031637-9 (Version None)
Quarter: 2012Q1

REPORT INFORMATION
  Report Type: 
  Country: None (occurrence: None)
  Receive Date: 20120109
  Receipt Date: 20120103
  Transmission Date: 20120608
  Serious: No
  Sender: FDA-Public Use
  Company Number: US-BAYER-2012-001594

PATIENT
  Age: 62 Year
  Sex: Female

DRUGS (1)
  1. FINACEA [Suspect]
     Indication: ROSACEA
     Dosage: USING FROM PAST 2-3 YEARS
     Route: 061

REACTIONS (2)
  - RASH [None]
  - PRURITUS [None]
